FAERS Safety Report 11662875 (Version 2)
Quarter: 2015Q4

REPORT INFORMATION
  Report Type: Spontaneous
  Country: RU (occurrence: None)
  Receive Date: 20151023
  Receipt Date: 20151104
  Transmission Date: 20160304
  Serious: Yes (Hospitalization, Other)
  Sender: FDA-Public Use
  Company Number: 1510RUS009082

PATIENT
  Age: 3 Year
  Sex: Female

DRUGS (4)
  1. EURESPAL (FENSPIRIDE HYDROCHLORIDE) [Concomitant]
  2. CEDAX [Suspect]
     Active Substance: CEFTIBUTEN DIHYDRATE
     Indication: BACTERIAL INFECTION
     Route: 048
     Dates: start: 201402, end: 2014
  3. CEDAX [Suspect]
     Active Substance: CEFTIBUTEN DIHYDRATE
     Indication: RESPIRATORY TRACT INFECTION VIRAL
     Route: 048
     Dates: start: 201402, end: 2014
  4. IMUDON (BACTERIAL LYSATES (UNSPECIFIED)) [Concomitant]

REACTIONS (3)
  - Incorrect product formulation administered [None]
  - Urticaria [None]
  - Hypersensitivity [None]

NARRATIVE: CASE EVENT DATE: 2014
